FAERS Safety Report 23196598 (Version 2)
Quarter: 2023Q4

REPORT INFORMATION
  Report Type: Spontaneous
  Country: US (occurrence: US)
  Receive Date: 20231117
  Receipt Date: 20231228
  Transmission Date: 20240109
  Serious: Yes (Other)
  Sender: FDA-Public Use
  Company Number: US-PFIZER INC-PV202300016003

PATIENT
  Age: 78 Year
  Sex: Female

DRUGS (1)
  1. IBRANCE [Suspect]
     Active Substance: PALBOCICLIB
     Indication: Breast cancer metastatic
     Dosage: 1 TAB/ DAY 2 WEEKS ON, 2 WEEKS OFF

REACTIONS (2)
  - Breast mass [Unknown]
  - Off label use [Unknown]
